FAERS Safety Report 10567352 (Version 5)
Quarter: 2015Q1

REPORT INFORMATION
  Report Type: Report from Study
  Country: BR (occurrence: BR)
  Receive Date: 20141106
  Receipt Date: 20150113
  Transmission Date: 20150720
  Serious: Yes (Other)
  Sender: FDA-Public Use
  Company Number: PHHY2014BR137294

PATIENT
  Age: 11 Year
  Sex: Female
  Weight: 55 kg

DRUGS (1)
  1. OMNITROPE [Suspect]
     Active Substance: SOMATROPIN
     Indication: BLOOD GROWTH HORMONE ABNORMAL
     Dosage: 2.3 MG, QD
     Route: 058
     Dates: start: 2013, end: 201410

REACTIONS (7)
  - Pain in extremity [Recovered/Resolved]
  - Limb discomfort [Recovered/Resolved]
  - Soft tissue disorder [Recovered/Resolved]
  - Bone lesion [Recovered/Resolved]
  - Myeloproliferative disorder [Recovered/Resolved]
  - Bone marrow oedema [Recovered/Resolved]
  - Fall [Recovered/Resolved]

NARRATIVE: CASE EVENT DATE: 201409
